FAERS Safety Report 5530931-0 (Version None)
Quarter: 2007Q4

REPORT INFORMATION
  Report Type: 
  Country: None (occurrence: None)
  Receive Date: 20071130
  Receipt Date: 20071121
  Transmission Date: 20080405
  Serious: Yes (Other)
  Sender: FDA-Public Use
  Company Number: US-PFIZER INC-2007076857

PATIENT
  Age: 43 Year
  Sex: Female
  Weight: 44 kg

DRUGS (13)
  1. REVATIO [Suspect]
     Indication: PULMONARY HYPERTENSION
     Route: 048
     Dates: start: 20070701, end: 20070913
  2. FLOLAN [Concomitant]
  3. AMBIEN [Concomitant]
  4. CYANOCOBALAMIN [Concomitant]
  5. NEXIUM [Concomitant]
  6. DIGOXIN [Concomitant]
  7. FOLIC ACID [Concomitant]
  8. FERROUS SULFATE TAB [Concomitant]
  9. ASCORBIC ACID [Concomitant]
  10. ARANESP [Concomitant]
  11. DOBUTAMINE HCL [Concomitant]
  12. WARFARIN SODIUM [Concomitant]
  13. COLACE [Concomitant]

REACTIONS (2)
  - CHORIORETINOPATHY [None]
  - RETINAL EXUDATES [None]
